FAERS Safety Report 11113032 (Version 1)
Quarter: 2015Q2

REPORT INFORMATION
  Report Type: Report from Study
  Country: US (occurrence: US)
  Receive Date: 20150514
  Receipt Date: 20150514
  Transmission Date: 20150821
  Serious: Yes (Hospitalization)
  Sender: FDA-Public Use
  Company Number: US-ACTELION-A-US2015-117914

PATIENT
  Age: 66 Year
  Sex: Female

DRUGS (13)
  1. LETAIRIS [Concomitant]
     Active Substance: AMBRISENTAN
  2. SPIRIVA [Concomitant]
     Active Substance: TIOTROPIUM BROMIDE MONOHYDRATE
  3. AZELASTINE [Concomitant]
     Active Substance: AZELASTINE
  4. PERCOCET [Concomitant]
     Active Substance: ACETAMINOPHEN\OXYCODONE HYDROCHLORIDE
  5. VENTAVIS [Suspect]
     Active Substance: ILOPROST
     Indication: PULMONARY ARTERIAL HYPERTENSION
     Dosage: 5 MCG, 5X/DAY
     Route: 055
     Dates: start: 20130606
  6. GEMFIBROZIL. [Concomitant]
     Active Substance: GEMFIBROZIL
  7. VENTAVIS [Suspect]
     Active Substance: ILOPROST
     Dosage: 5 MCG, 5X/DAY
     Route: 055
     Dates: start: 20150510
  8. ADCIRCA [Concomitant]
     Active Substance: TADALAFIL
  9. XARELTO [Concomitant]
     Active Substance: RIVAROXABAN
  10. H.P. ACTHAR [Concomitant]
     Active Substance: CORTICOTROPIN
  11. NEXIUM [Concomitant]
     Active Substance: ESOMEPRAZOLE MAGNESIUM
  12. DULERA [Concomitant]
     Active Substance: FORMOTEROL FUMARATE DIHYDRATE\MOMETASONE FUROATE
  13. LASIX [Concomitant]
     Active Substance: FUROSEMIDE

REACTIONS (6)
  - Weight increased [Recovering/Resolving]
  - Oral surgery [Unknown]
  - Diabetes mellitus [Recovering/Resolving]
  - Nausea [Unknown]
  - Oedema [Recovering/Resolving]
  - Dry mouth [Unknown]
